FAERS Safety Report 7290176-3 (Version None)
Quarter: 2011Q1

REPORT INFORMATION
  Report Type: 
  Country: None (occurrence: None)
  Receive Date: 20110214
  Receipt Date: 20110203
  Transmission Date: 20110831
  Serious: Yes (Other)
  Sender: FDA-Public Use
  Company Number: PHHY2011US10694

PATIENT
  Age: 63 Year
  Sex: Female

DRUGS (3)
  1. BETA BLOCKING AGENTS [Concomitant]
  2. RECLAST [Suspect]
  3. NASALCROM [Concomitant]

REACTIONS (4)
  - ARRHYTHMIA [None]
  - TACHYCARDIA [None]
  - BLOOD PRESSURE INCREASED [None]
  - HEADACHE [None]
